FAERS Safety Report 24582516 (Version 2)
Quarter: 2024Q4

REPORT INFORMATION
  Report Type: Spontaneous
  Country: DE (occurrence: DE)
  Receive Date: 20241106
  Receipt Date: 20241114
  Transmission Date: 20250114
  Serious: Yes (Hospitalization)
  Sender: ACCORD
  Company Number: DE-Accord-452530

PATIENT
  Age: 8 Year
  Sex: Female
  Weight: 29 kg

DRUGS (3)
  1. LEVETIRACETAM [Suspect]
     Active Substance: LEVETIRACETAM
     Indication: Generalised tonic-clonic seizure
     Dosage: STRENGTH: 100 MG/ML
     Route: 048
     Dates: start: 2024
  2. MIDAZOLAM [Suspect]
     Active Substance: MIDAZOLAM
     Indication: Product used for unknown indication
  3. SULTHIAME [Suspect]
     Active Substance: SULTHIAME
     Indication: Product used for unknown indication

REACTIONS (2)
  - Electroencephalogram abnormal [Recovered/Resolved]
  - Anticonvulsant drug level increased [Unknown]

NARRATIVE: CASE EVENT DATE: 20240101
